FAERS Safety Report 5255224-0 (Version None)
Quarter: 2007Q1

REPORT INFORMATION
  Report Type: 
  Country: None (occurrence: None)
  Receive Date: 20070305
  Receipt Date: 20070223
  Transmission Date: 20070707
  Serious: Yes (Hospitalization)
  Sender: FDA-Public Use
  Company Number: DE-ROCHE-484389

PATIENT
  Age: 66 Year
  Sex: Male

DRUGS (1)
  1. XELODA [Suspect]
     Indication: THERAPEUTIC PROCEDURE
     Dosage: GIVEN IN CYCLES.
     Route: 065
     Dates: start: 20070122

REACTIONS (1)
  - MENINGITIS ASEPTIC [None]
